FAERS Safety Report 8384742-1 (Version None)
Quarter: 2012Q2

REPORT INFORMATION
  Report Type: 
  Country: None (occurrence: None)
  Receive Date: 20120524
  Receipt Date: 20120513
  Transmission Date: 20120825
  Serious: Yes (Other)
  Sender: FDA-Public Use
  Company Number: US-PERRIGO-12US004280

PATIENT
  Sex: Male
  Weight: 77.098 kg

DRUGS (3)
  1. DIPHENHYDRAMINE HCL [Suspect]
     Indication: INSOMNIA
     Dosage: 75 MG TO 175 MG, PRN
     Route: 048
     Dates: start: 20100101, end: 20120510
  2. PHENYLEPHRINE HCL [Suspect]
     Indication: NASAL CONGESTION
     Dosage: 10 MG, EVERY 3 TO 4 HOURS, PRN
     Route: 048
     Dates: start: 20110301, end: 20120511
  3. DIPHENHYDRAMINE HCL [Suspect]
     Dosage: 75 MG, SINGLE
     Route: 048
     Dates: start: 20120511, end: 20120511

REACTIONS (4)
  - HALLUCINATION [None]
  - INAPPROPRIATE SCHEDULE OF DRUG ADMINISTRATION [None]
  - INSOMNIA [None]
  - OVERDOSE [None]
